FAERS Safety Report 11788930 (Version 1)
Quarter: 2015Q4

REPORT INFORMATION
  Report Type: Spontaneous
  Country: GB (occurrence: GB)
  Receive Date: 20151201
  Receipt Date: 20151201
  Transmission Date: 20160305
  Serious: Yes (Other)
  Sender: FDA-Public Use
  Company Number: GB-ACTAVIS-2015-18621

PATIENT
  Age: 4 Year
  Sex: Male
  Weight: 12.7 kg

DRUGS (3)
  1. ZINC OXIDE. [Concomitant]
     Active Substance: ZINC OXIDE
     Indication: PRODUCT USED FOR UNKNOWN INDICATION
     Dosage: UNK
     Route: 065
  2. CHLORPHENAMINE MALEATE [Concomitant]
     Active Substance: CHLORPHENIRAMINE MALEATE
     Indication: PRODUCT USED FOR UNKNOWN INDICATION
     Dosage: UNK
     Route: 065
  3. HYDROCORTISONE (UNKNOWN) [Suspect]
     Active Substance: HYDROCORTISONE
     Indication: ECZEMA
     Dosage: 1 DF, BID(AS NEEDED- NEVER MORE THAN 5 CONSEQUETIVE DAYS)
     Route: 061
     Dates: start: 20150106, end: 20150321

REACTIONS (10)
  - Rash [Unknown]
  - Rash erythematous [Recovering/Resolving]
  - Urticaria [Recovered/Resolved]
  - Pain of skin [Recovering/Resolving]
  - Pruritus generalised [Recovered/Resolved]
  - Eczema [Recovering/Resolving]
  - Withdrawal syndrome [Recovering/Resolving]
  - Skin atrophy [Recovered/Resolved]
  - Skin discomfort [Unknown]
  - Skin exfoliation [Recovering/Resolving]

NARRATIVE: CASE EVENT DATE: 20150115
